FAERS Safety Report 9518537 (Version 2)
Quarter: 2014Q1

REPORT INFORMATION
  Report Type: Spontaneous
  Country: US (occurrence: None)
  Receive Date: 20130305
  Receipt Date: 20140306
  Transmission Date: 20141002
  Serious: Yes (Other)
  Sender: FDA-Public Use
  Company Number: 163-21880-12121302

PATIENT
  Age: 63 Year
  Sex: Male
  Weight: 102.97 kg

DRUGS (7)
  1. REVLIMID [Suspect]
     Indication: PLASMA CELL MYELOMA
     Dosage: 10 MG, 21 IN 28 D, PO
     Route: 048
     Dates: start: 20120906
  2. LEVAQUIN (LEVOFLOXACIN) (UNKNOWN) [Concomitant]
  3. VELCADE (BORTEZOMIB) [Concomitant]
  4. DEXAMETHASONE [Concomitant]
  5. CARFILZOMIB [Concomitant]
  6. SODIUM BICARB [Concomitant]
  7. COUMADIN [Concomitant]

REACTIONS (4)
  - Infection [None]
  - Neutrophil count decreased [None]
  - White blood cell count decreased [None]
  - Nasopharyngitis [None]
